FAERS Safety Report 16023901 (Version 1)
Quarter: 2019Q1

REPORT INFORMATION
  Report Type: Spontaneous
  Country: FR (occurrence: FR)
  Receive Date: 20190301
  Receipt Date: 20190301
  Transmission Date: 20190418
  Serious: Yes (Other)
  Sender: FDA-Public Use
  Company Number: FR-009507513-1903FRA000214

PATIENT
  Age: 62 Year
  Sex: Male
  Weight: 74 kg

DRUGS (8)
  1. URSODIOL. [Concomitant]
     Active Substance: URSODIOL
     Indication: GASTROINTESTINAL DISORDER PROPHYLAXIS
     Dosage: 500 MG BID
     Dates: start: 20181108
  2. AMLODIPINE [Concomitant]
     Active Substance: AMLODIPINE BESYLATE
     Indication: HYPERTENSION
     Dosage: 10 MG QD
     Dates: start: 201812
  3. PREVYMIS [Suspect]
     Active Substance: LETERMOVIR
     Indication: ANTIVIRAL PROPHYLAXIS
     Dosage: 240MG QD
     Route: 048
     Dates: start: 20181115, end: 20190207
  4. INEXIUM (ESOMEPRAZOLE SODIUM) [Concomitant]
     Active Substance: ESOMEPRAZOLE SODIUM
     Indication: GASTROINTESTINAL DISORDER PROPHYLAXIS
     Dosage: 20 MG QD
     Dates: start: 20181108
  5. CYCLOSPORINE. [Suspect]
     Active Substance: CYCLOSPORINE
     Indication: PROPHYLAXIS
     Dosage: 50 MG BID
     Route: 048
     Dates: start: 20181112
  6. NOXAFIL [Concomitant]
     Active Substance: POSACONAZOLE
     Indication: PROPHYLAXIS
     Dosage: 300 MG QD
     Dates: start: 20181212
  7. VALACYCLOVIR HYDROCHLORIDE. [Concomitant]
     Active Substance: VALACYCLOVIR HYDROCHLORIDE
     Indication: PROPHYLAXIS
     Dosage: 500 MG QD
     Route: 048
     Dates: start: 20181115
  8. BACTRIM [Concomitant]
     Active Substance: SULFAMETHOXAZOLE\TRIMETHOPRIM
     Indication: PROPHYLAXIS
     Dosage: 1 DOSAGE FORM, TIW
     Route: 048
     Dates: start: 20181203

REACTIONS (1)
  - Renal failure [Recovering/Resolving]

NARRATIVE: CASE EVENT DATE: 20190107
